FAERS Safety Report 4738806-1 (Version None)
Quarter: 2005Q3

REPORT INFORMATION
  Report Type: 
  Country: None (occurrence: None)
  Receive Date: 20050804
  Receipt Date: 20050722
  Transmission Date: 20060218
  Serious: Yes (Death, Other)
  Sender: FDA-Public Use
  Company Number: 2005JP001349

PATIENT
  Age: 63 Year
  Sex: Female

DRUGS (4)
  1. FUNGUARD(MICAFUNGIN) INJECTION [Suspect]
     Dosage: 200.00 MG, D, IV DRIP; SEE IMAGE
     Route: 041
     Dates: start: 20050609, end: 20050609
  2. FUNGUARD(MICAFUNGIN) INJECTION [Suspect]
     Dosage: 200.00 MG, D, IV DRIP; SEE IMAGE
     Route: 041
     Dates: start: 20050610, end: 20050610
  3. FUNGUARD(MICAFUNGIN) INJECTION [Suspect]
     Dosage: 200.00 MG, D, IV DRIP; SEE IMAGE
     Route: 041
     Dates: start: 20050611, end: 20050617
  4. FUNGUARD(MICAFUNGIN) INJECTION [Suspect]
     Dosage: 200.00 MG, D, IV DRIP; SEE IMAGE
     Route: 041
     Dates: start: 20050618, end: 20050628

REACTIONS (2)
  - HYPERBILIRUBINAEMIA [None]
  - SEPSIS [None]
